FAERS Safety Report 8579974-3 (Version None)
Quarter: 2012Q3

REPORT INFORMATION
  Report Type: 
  Country: None (occurrence: None)
  Receive Date: 20120808
  Receipt Date: 20120731
  Transmission Date: 20120928
  Serious: No
  Sender: FDA-Public Use
  Company Number: US-PFIZER INC-2012138618

PATIENT
  Age: 65 Year
  Sex: Female
  Weight: 99.773 kg

DRUGS (6)
  1. PROCARDIA XL [Concomitant]
     Indication: HYPERTENSION
     Dosage: 30 MG, DAILY
     Route: 048
     Dates: start: 20050101
  2. PROCARDIA XL [Concomitant]
     Indication: RAYNAUD'S PHENOMENON
  3. WARFARIN [Concomitant]
     Indication: RAYNAUD'S PHENOMENON
     Dosage: 5 MG, DAILY
  4. REVATIO [Suspect]
     Indication: PULMONARY HYPERTENSION
     Dosage: 20 MG, 6X/DAY
     Route: 048
  5. REVATIO [Suspect]
     Indication: RAYNAUD'S PHENOMENON
     Dosage: 20 MG, 3X/DAY
     Route: 048
  6. LOSARTAN [Concomitant]
     Indication: HYPERTENSION
     Dosage: 25 MG, DAILY

REACTIONS (2)
  - OFF LABEL USE [None]
  - DRUG INTOLERANCE [None]
